FAERS Safety Report 8437647 (Version 3)
Quarter: 2013Q2

REPORT INFORMATION
  Report Type: Spontaneous
  Country: US (occurrence: None)
  Receive Date: 20120113
  Receipt Date: 20120713
  Transmission Date: 20140414
  Serious: No
  Sender: FDA-Public Use
  Company Number: PHEH2011US011105

PATIENT
  Sex: Female
  Weight: 61.5 kg

DRUGS (20)
  1. ILARIS [Suspect]
     Indication: CRYOPYRIN ASSOCIATED PERIODIC SYNDROME
     Dosage: 180 MG, ONCE IN 8 WEEKS, SUBCUTANEOUS
     Route: 058
     Dates: start: 20110829
  2. COUMADIN [Concomitant]
  3. LIPITOR [Concomitant]
  4. TRICOR [Concomitant]
  5. SYNTHROID [Concomitant]
  6. COREG [Concomitant]
  7. PREDNISONE [Concomitant]
  8. HYZAAR [Concomitant]
  9. LASIX [Concomitant]
  10. CALTRATE PLUS (CALCIUM, COLECALCIFEROL, COPPER, MAGNESIUM, MANGANESE, ZINC) [Concomitant]
  11. METROCREAM [Concomitant]
  12. LAMISIL [Concomitant]
  13. NORVASC [Concomitant]
  14. WELCHOL [Concomitant]
  15. COENZYME A (COENZYME A) [Concomitant]
  16. ERGOCALCIFEROL [Concomitant]
  17. BYSTOLIC [Concomitant]
  18. LOVENOX [Concomitant]
  19. IMDUR [Concomitant]
  20. MULTIVITAMINS (ASCORBIC ACID, ERGOCALCIFEROL, FOLIC ACID, NICOTINAMIDE, PANTHENOL, RETINOL, RIBOFLAV [Concomitant]

REACTIONS (2)
  - ARTHRALGIA [None]
  - DRUG INEFFECTIVE [None]
